FAERS Safety Report 7269617-3 (Version None)
Quarter: 2010Q4

REPORT INFORMATION
  Report Type: 
  Country: None (occurrence: None)
  Receive Date: 20101130
  Receipt Date: 20100104
  Transmission Date: 20110411
  Serious: Yes (Hospitalization, Other)
  Sender: FDA-Public Use
  Company Number: 2010SP000821

PATIENT
  Age: 38 Year
  Sex: Female
  Weight: 113.3993 kg

DRUGS (2)
  1. NUVARING [Suspect]
     Indication: CONTRACEPTION
     Dates: start: 20060201, end: 20060401
  2. NUVARING [Suspect]
     Indication: MENSTRUATION IRREGULAR
     Dates: start: 20060201, end: 20060401

REACTIONS (6)
  - DEEP VEIN THROMBOSIS [None]
  - HYPERPHOSPHATAEMIA [None]
  - MIGRAINE [None]
  - PULMONARY EMBOLISM [None]
  - PULMONARY INFARCTION [None]
  - TENDONITIS [None]
